FAERS Safety Report 10442145 (Version 1)
Quarter: 2014Q2

REPORT INFORMATION
  Report Type: Spontaneous
  Country: US (occurrence: None)
  Receive Date: 20140616
  Receipt Date: 20140616
  Transmission Date: 20141212
  Serious: Yes (Hospitalization)
  Sender: FDA-Public Use
  Company Number: 2012-003587

PATIENT
  Age: 59 Year
  Sex: Female
  Weight: 73 kg

DRUGS (15)
  1. ACTONEL [Suspect]
     Indication: OSTEOPOROSIS
     Route: 048
  2. ACTONEL [Suspect]
     Indication: OSTEOPENIA
     Route: 048
  3. BONIVA (IBANDRONATE SODIUM) [Suspect]
     Indication: OSTEOPOROSIS
     Route: 048
     Dates: start: 20060831, end: 20111004
  4. BONIVA (IBANDRONATE SODIUM) [Suspect]
     Indication: OSTEOPENIA
     Route: 048
     Dates: start: 20060831, end: 20111004
  5. FOSAMAX (ALENDRONATE SODIUM) [Suspect]
     Indication: OSTEOPENIA
     Route: 048
     Dates: start: 20030721, end: 20060831
  6. FOSAMAX (ALENDRONATE SODIUM) [Suspect]
     Indication: OSTEOPOROSIS
     Route: 048
     Dates: start: 20030721, end: 20060831
  7. FOSAMAX D [Suspect]
  8. RISEDRONATE SODIUM [Suspect]
  9. ZOCOR (SIMVASTATIN) [Concomitant]
  10. PRILOSEC (OMEPRAZOLE) [Concomitant]
  11. CELEXA (CITALOPRAM HYDROBROMIDE) [Concomitant]
  12. FISH OIL [Concomitant]
  13. MULTIVITAMINS, PLAIN [Concomitant]
  14. CALCIUM [Concomitant]
  15. VITAMIN D3 (COLECALCIFEROL) [Concomitant]

REACTIONS (6)
  - Femur fracture [None]
  - Stress fracture [None]
  - Pain in extremity [None]
  - Skeletal injury [None]
  - Pain [None]
  - Low turnover osteopathy [None]
